FAERS Safety Report 4427603-2 (Version None)
Quarter: 2004Q3

REPORT INFORMATION
  Report Type: 
  Country: None (occurrence: None)
  Receive Date: 20040817
  Receipt Date: 20040811
  Transmission Date: 20050211
  Serious: Yes (Hospitalization)
  Sender: FDA-Public Use
  Company Number: US-BRISTOL-MYERS SQUIBB COMPANY-12666566

PATIENT
  Age: 51 Year
  Sex: Female
  Weight: 112 kg

DRUGS (10)
  1. TAXOL [Suspect]
     Indication: BREAST CANCER
     Dosage: FIRST DOSE: 05-MAY-2004 QWK X16
     Route: 042
     Dates: start: 20040729, end: 20040729
  2. CARBOPLATIN [Suspect]
     Indication: BREAST CANCER
     Dosage: AUC 6  FIRST DOSE: 05-MAY-2004 ON WEEKS 1,5,9, AND 13
     Route: 042
     Dates: start: 20040729, end: 20040729
  3. PRILOSEC [Concomitant]
     Route: 048
  4. CELEXA [Concomitant]
     Route: 048
  5. ACTOS [Concomitant]
     Route: 048
  6. HYDROCHLOROTHIAZIDE [Concomitant]
     Route: 048
  7. AMBIEN [Concomitant]
  8. OXYBUTYNIN CHLORIDE [Concomitant]
     Route: 048
  9. GLUCOPHAGE [Concomitant]
     Dosage: 5/500 MG
  10. MOTRIN [Concomitant]

REACTIONS (11)
  - BLOOD ALBUMIN DECREASED [None]
  - BLOOD BILIRUBIN INCREASED [None]
  - BLOOD CHLORIDE DECREASED [None]
  - BLOOD CREATINE INCREASED [None]
  - BLOOD POTASSIUM DECREASED [None]
  - DEHYDRATION [None]
  - HAEMATOCRIT DECREASED [None]
  - HAEMOGLOBIN DECREASED [None]
  - MARKEDLY REDUCED DIETARY INTAKE [None]
  - NAUSEA [None]
  - VOMITING [None]
